FAERS Safety Report 8973917 (Version 3)
Quarter: 2013Q1

REPORT INFORMATION
  Report Type: Report from Study
  Country: JP (occurrence: JP)
  Receive Date: 20121218
  Receipt Date: 20130107
  Transmission Date: 20140127
  Serious: Yes (Death, Other)
  Sender: FDA-Public Use
  Company Number: JP-GLAXOSMITHKLINE-B0853094A

PATIENT
  Age: 82 Year
  Sex: Male
  Weight: 54.5 kg

DRUGS (9)
  1. GABAPENTIN ENACARBIL [Suspect]
     Indication: RESTLESS LEGS SYNDROME
     Dosage: 300MG PER DAY
     Route: 048
     Dates: start: 20121009, end: 20121121
  2. SENNARIDE [Concomitant]
  3. LENDORMIN [Concomitant]
  4. CANNABIS SATIVA [Concomitant]
     Route: 048
  5. CRAVIT [Concomitant]
     Dates: start: 20121122
  6. LASIX [Concomitant]
     Dates: start: 20121124
  7. LACTEC G [Concomitant]
     Indication: PYREXIA
     Dates: start: 20121116
  8. TRIFLUID [Concomitant]
     Indication: ABDOMINAL DISTENSION
     Dates: start: 20121121
  9. CEFTRIAXONE SODIUM [Concomitant]
     Indication: ABDOMINAL DISTENSION
     Dates: start: 20121122

REACTIONS (2)
  - Gastroenteritis [Unknown]
  - Hepatic cancer metastatic [Fatal]
